FAERS Safety Report 21350681 (Version 2)
Quarter: 2022Q4

REPORT INFORMATION
  Report Type: Report from Study
  Country: US (occurrence: US)
  Receive Date: 20220919
  Receipt Date: 20221003
  Transmission Date: 20230112
  Serious: Yes (Death, Hospitalization)
  Sender: FDA-Public Use
  Company Number: US-EUSA PHARMA (UK) LIMITED-2022US000409

PATIENT

DRUGS (2)
  1. SYLVANT [Suspect]
     Active Substance: SILTUXIMAB
     Indication: Pancreatic carcinoma
     Dosage: 1020 MG, DAY ONE OF 21 DAYS CYCLE
     Route: 042
     Dates: start: 20220825, end: 20220825
  2. SPARTALIZUMAB [Suspect]
     Active Substance: SPARTALIZUMAB
     Indication: Pancreatic carcinoma
     Dosage: 300 MG, DAY ONE OF 21 DAYS CYCLE
     Route: 042
     Dates: start: 20220825, end: 20220825

REACTIONS (4)
  - Dehydration [Unknown]
  - Pulseless electrical activity [Fatal]
  - Cardiac arrest [Fatal]
  - Abdominal pain [Unknown]

NARRATIVE: CASE EVENT DATE: 20220907
